FAERS Safety Report 7796655-4 (Version None)
Quarter: 2011Q3

REPORT INFORMATION
  Report Type: 
  Country: None (occurrence: None)
  Receive Date: 20110930
  Receipt Date: 20110916
  Transmission Date: 20111222
  Serious: Yes (Other)
  Sender: FDA-Public Use
  Company Number: JPI-P-017134

PATIENT
  Age: 29 Year
  Sex: Female
  Weight: 54.4316 kg

DRUGS (9)
  1. RIZATRIPTAN [Concomitant]
  2. FENTANYL [Concomitant]
  3. ZONISAMAIDE [Concomitant]
  4. NORTRIPTYLINE HCL [Concomitant]
  5. CETIRIZINE HCL [Concomitant]
  6. ARMODAFINIL [Concomitant]
  7. CLONAZEPAM [Concomitant]
  8. XYREM [Suspect]
     Indication: NARCOLEPSY
     Dosage: ORAL; 7.5 MG (7.5 GM, 1 IN 1 D), ORAL
     Route: 048
     Dates: start: 20050801
  9. CELECOXIB [Concomitant]

REACTIONS (1)
  - ENDOMETRIOSIS [None]
